FAERS Safety Report 5300317-2 (Version None)
Quarter: 2007Q2

REPORT INFORMATION
  Report Type: 
  Country: None (occurrence: None)
  Receive Date: 20070418
  Receipt Date: 20070405
  Transmission Date: 20071010
  Serious: Yes (Hospitalization)
  Sender: FDA-Public Use
  Company Number: PHFR2007GB00874

PATIENT
  Age: 43 Year
  Sex: Male

DRUGS (5)
  1. CLOZARIL [Suspect]
     Indication: SCHIZOPHRENIA
     Dosage: 50MG/DAY
     Route: 048
     Dates: end: 20070217
  2. VENLAFAXINE HCL [Concomitant]
     Indication: DEPRESSION
     Dosage: 150MG/DAY
     Route: 048
  3. TOPIRAMATE [Concomitant]
     Indication: WEIGHT INCREASED
     Dosage: 75MG/DAY
     Route: 048
  4. BETAMETHASONE [Concomitant]
     Indication: ASTHMA
  5. LORAZEPAM [Concomitant]
     Indication: AGITATION
     Dosage: 1-4MG/DAY
     Route: 048

REACTIONS (4)
  - NEUTROPENIA [None]
  - NEUTROPHIL COUNT DECREASED [None]
  - SUBCUTANEOUS ABSCESS [None]
  - WHITE BLOOD CELL COUNT DECREASED [None]
